FAERS Safety Report 7863340-X (Version None)
Quarter: 2011Q4

REPORT INFORMATION
  Report Type: 
  Country: None (occurrence: None)
  Receive Date: 20111027
  Receipt Date: 20101202
  Transmission Date: 20120403
  Serious: No
  Sender: FDA-Public Use
  Company Number: US-AMGEN-USASP2010001859

PATIENT
  Age: 49 Year
  Sex: Female

DRUGS (1)
  1. ENBREL [Suspect]
     Indication: RHEUMATOID ARTHRITIS
     Route: 058
     Dates: start: 20030501

REACTIONS (7)
  - FUNGAL INFECTION [None]
  - NASOPHARYNGITIS [None]
  - GINGIVAL BLEEDING [None]
  - INJECTION SITE HAEMATOMA [None]
  - CONTUSION [None]
  - VIRAL INFECTION [None]
  - SKIN INFECTION [None]
